FAERS Safety Report 9164968 (Version 1)
Quarter: 2013Q1

REPORT INFORMATION
  Report Type: Spontaneous
  Country: US (occurrence: None)
  Receive Date: 20130313
  Receipt Date: 20130313
  Transmission Date: 20140127
  Serious: Yes (Hospitalization)
  Sender: FDA-Public Use
  Company Number: None

PATIENT
  Age: 65 Year
  Sex: Male
  Weight: 144.5 kg

DRUGS (1)
  1. ENOXAPARIN [Suspect]
     Indication: PULMONARY EMBOLISM
     Dates: start: 20130119, end: 20130119

REACTIONS (6)
  - Abdominal wall haematoma [None]
  - Dizziness [None]
  - Anaemia [None]
  - Blood pressure decreased [None]
  - Injection site haematoma [None]
  - Haemorrhage [None]
